FAERS Safety Report 6219759-6 (Version None)
Quarter: 2009Q2

REPORT INFORMATION
  Report Type: 
  Country: None (occurrence: None)
  Receive Date: 20090609
  Receipt Date: 20090601
  Transmission Date: 20091009
  Serious: Yes (Hospitalization, Disabling)
  Sender: FDA-Public Use
  Company Number: A0778114A

PATIENT
  Sex: Female

DRUGS (10)
  1. PAXIL [Suspect]
     Indication: DEPRESSION
     Route: 048
     Dates: start: 19980101, end: 20000101
  2. LITHIUM [Suspect]
     Indication: DRUG USE FOR UNKNOWN INDICATION
     Route: 065
  3. SERZONE [Suspect]
  4. NEURONTIN [Suspect]
  5. ATIVAN [Suspect]
  6. DEPAKOTE [Suspect]
  7. CYTOMEL [Suspect]
     Indication: DRUG USE FOR UNKNOWN INDICATION
     Dosage: 12.5MCG PER DAY
  8. SYNTHROID [Suspect]
     Indication: DRUG USE FOR UNKNOWN INDICATION
  9. EFFEXOR [Suspect]
     Indication: DRUG USE FOR UNKNOWN INDICATION
  10. LEVOTHYROXINE [Concomitant]

REACTIONS (7)
  - DISABILITY [None]
  - DRUG INEFFECTIVE [None]
  - HYPERSENSITIVITY [None]
  - HYPERSOMNIA [None]
  - IMPAIRED WORK ABILITY [None]
  - LOSS OF CONSCIOUSNESS [None]
  - WEIGHT INCREASED [None]
